FAERS Safety Report 8238608-8 (Version None)
Quarter: 2012Q1

REPORT INFORMATION
  Report Type: 
  Country: None (occurrence: None)
  Receive Date: 20120327
  Receipt Date: 20120319
  Transmission Date: 20120608
  Serious: Yes (Hospitalization)
  Sender: FDA-Public Use
  Company Number: US-BAYER-201017770NA

PATIENT
  Age: 27 Year
  Sex: Female
  Weight: 55 kg

DRUGS (19)
  1. ALLERGY SHOTS [Concomitant]
  2. ALLEGRA [Concomitant]
  3. YAZ [Suspect]
     Route: 048
     Dates: start: 20070907
  4. VENTOLIN DS [Concomitant]
  5. TRIAMCINOLONE [Concomitant]
  6. COLACE [Concomitant]
     Indication: GASTROINTESTINAL DISORDER
  7. MOTRIN [Concomitant]
  8. EYE DROPS [Concomitant]
  9. PREDNISONE TAB [Concomitant]
  10. MACROBID [Concomitant]
  11. IBUPROFEN (ADVIL) [Concomitant]
  12. BENADRYL [Concomitant]
  13. FLONASE [Concomitant]
  14. YASMIN [Suspect]
     Indication: ORAL CONTRACEPTION
     Dosage: AS USED DOSE: UNK
     Route: 048
     Dates: start: 20061211, end: 20080610
  15. HYDROCORTISONE [Concomitant]
  16. ZYRTEC [Concomitant]
  17. EPIPEN [Concomitant]
     Indication: MULTIPLE ALLERGIES
     Dosage: UNK UNK, PRN
  18. SINGULAIR [Concomitant]
  19. ALBUTEROL [Concomitant]

REACTIONS (6)
  - PNEUMONIA [None]
  - DEEP VEIN THROMBOSIS [None]
  - PULMONARY EMBOLISM [None]
  - CHEST PAIN [None]
  - MUSCULOSKELETAL PAIN [None]
  - PAIN IN EXTREMITY [None]
